FAERS Safety Report 10090408 (Version 2)
Quarter: 2014Q2

REPORT INFORMATION
  Report Type: Report from Study
  Country: US (occurrence: US)
  Receive Date: 20140421
  Receipt Date: 20140421
  Transmission Date: 20141212
  Serious: Yes (Other)
  Sender: FDA-Public Use
  Company Number: US-SANOFI-AVENTIS-2013SA039332

PATIENT
  Age: 42 Year
  Sex: Male

DRUGS (2)
  1. AUBAGIO [Suspect]
     Indication: MULTIPLE SCLEROSIS
     Route: 048
     Dates: start: 20130312
  2. FLAGYL [Suspect]
     Indication: DIVERTICULITIS

REACTIONS (2)
  - Diverticulitis [Recovered/Resolved]
  - Nausea [Recovering/Resolving]
